FAERS Safety Report 13183636 (Version 3)
Quarter: 2017Q1

REPORT INFORMATION
  Report Type: Spontaneous
  Country: JP (occurrence: JP)
  Receive Date: 20170203
  Receipt Date: 20170331
  Transmission Date: 20170428
  Serious: Yes (Other)
  Sender: FDA-Public Use
  Company Number: JP-ELI_LILLY_AND_COMPANY-JP201701011535

PATIENT
  Age: 86 Year
  Sex: Female

DRUGS (15)
  1. FORTEO [Suspect]
     Active Substance: TERIPARATIDE
     Indication: OSTEOPOROSIS
     Dosage: 20 UG, QD
     Route: 058
     Dates: start: 20160412
  2. BAYASPIRIN [Concomitant]
     Active Substance: ASPIRIN
     Dosage: 100 MG, BID
     Route: 048
  3. AMBROXOL HYDROCHLORIDE [Concomitant]
     Active Substance: AMBROXOL HYDROCHLORIDE
     Dosage: 15 MG, BID
     Route: 048
  4. KIPRES [Concomitant]
     Active Substance: MONTELUKAST SODIUM
  5. AMLODIPINE [Concomitant]
     Active Substance: AMLODIPINE BESYLATE
     Dosage: 5 MG, QD
     Route: 048
  6. GLORIAMIN                          /00518301/ [Concomitant]
     Dosage: UNK
     Route: 048
  7. AMOBAN [Concomitant]
     Active Substance: ZOPICLONE
  8. MERISLON [Concomitant]
     Active Substance: BETAHISTINE MESILATE
  9. SIGMART [Concomitant]
     Active Substance: NICORANDIL
     Dosage: 5 MG, BID
     Route: 048
  10. CALCITRIOL. [Concomitant]
     Active Substance: CALCITRIOL
  11. GASMOTIN [Concomitant]
     Active Substance: MOSAPRIDE CITRATE
     Dosage: 5 MG, BID
     Route: 048
  12. SENNOSIDE                          /00571901/ [Concomitant]
     Active Substance: SENNOSIDES A AND B
  13. JUVELA                             /00110502/ [Concomitant]
     Dosage: 100 MG, BID
     Route: 048
  14. LOXONIN [Concomitant]
     Active Substance: LOXOPROFEN SODIUM
  15. ETIZOLAM [Concomitant]
     Active Substance: ETIZOLAM

REACTIONS (1)
  - Plasma cell myeloma [Unknown]

NARRATIVE: CASE EVENT DATE: 20170124
